FAERS Safety Report 24089485 (Version 1)
Quarter: 2024Q3

REPORT INFORMATION
  Report Type: Spontaneous
  Country: JP (occurrence: JP)
  Receive Date: 20240715
  Receipt Date: 20240715
  Transmission Date: 20241017
  Serious: No
  Sender: PIERRE FABRE MEDICAMENT
  Company Number: JP-PFM-2021-09243

PATIENT
  Age: 45 Month
  Sex: Male

DRUGS (4)
  1. PROPRANOLOL HYDROCHLORIDE [Suspect]
     Active Substance: PROPRANOLOL HYDROCHLORIDE
     Indication: Infantile haemangioma
     Dosage: 1.4 ML, (0.7 ML/12HOURS)
     Route: 048
     Dates: start: 20170112, end: 20170118
  2. PROPRANOLOL HYDROCHLORIDE [Suspect]
     Active Substance: PROPRANOLOL HYDROCHLORIDE
     Dosage: 2.8 ML, (1.4 ML/12HOURS)
     Route: 048
     Dates: start: 20170119, end: 20170125
  3. PROPRANOLOL HYDROCHLORIDE [Suspect]
     Active Substance: PROPRANOLOL HYDROCHLORIDE
     Dosage: 4.2 ML, (2.1 ML/12 HOURS)
     Route: 048
     Dates: start: 20170126, end: 20170403
  4. PROPRANOLOL HYDROCHLORIDE [Suspect]
     Active Substance: PROPRANOLOL HYDROCHLORIDE
     Dosage: 4.2 ML, (2.1 ML/12 HOURS)
     Route: 048
     Dates: start: 20170410, end: 20170903

REACTIONS (1)
  - Upper respiratory tract inflammation [Recovered/Resolved]

NARRATIVE: CASE EVENT DATE: 20170403
